FAERS Safety Report 14556113 (Version 1)
Quarter: 2018Q1

REPORT INFORMATION
  Report Type: Spontaneous
  Country: ES (occurrence: ES)
  Receive Date: 20180221
  Receipt Date: 20180221
  Transmission Date: 20180509
  Serious: Yes (Death, Other)
  Sender: FDA-Public Use
  Company Number: ES-CIPLA LTD.-2018ES05956

PATIENT

DRUGS (12)
  1. TERBINAFINE. [Suspect]
     Active Substance: TERBINAFINE
     Indication: ANTIFUNGAL TREATMENT
     Dosage: 250 MG, QD, FROM 102 POD
     Route: 048
  2. AMPHOTERICIN B LIPOSOMAL [Suspect]
     Active Substance: AMPHOTERICIN B
     Indication: ANTIFUNGAL PROPHYLAXIS
     Dosage: 240 MG, 86 TO 208 POD
     Route: 042
  3. IMMUNOGLOBULIN CYTOMEGALOVIRUS [Suspect]
     Active Substance: CYTOMEGALOVIRUS IMMUNE GLOBULIN HUMAN
     Indication: CYTOMEGALOVIRUS INFECTION
     Dosage: UNK
     Route: 065
  4. POSACONAZOLE [Suspect]
     Active Substance: POSACONAZOLE
     Dosage: 400 MG, QD, 86 POD
     Route: 042
  5. POSACONAZOLE [Suspect]
     Active Substance: POSACONAZOLE
     Dosage: 300 MG, QD, 116 POD
     Route: 048
  6. AMPHOTERICIN B LIPID COMPLEX [Suspect]
     Active Substance: AMPHOTERICIN B
     Indication: ANTIFUNGAL PROPHYLAXIS
     Dosage: 25 MG, Q 48 HRS
  7. GANCICLOVIR. [Suspect]
     Active Substance: GANCICLOVIR
     Indication: CYTOMEGALOVIRUS INFECTION
     Dosage: UNK
     Route: 042
  8. POSACONAZOLE [Suspect]
     Active Substance: POSACONAZOLE
     Dosage: 300 MG, QD, 108 POD
     Route: 042
  9. AMPHOTERICIN B LIPOSOMAL [Suspect]
     Active Substance: AMPHOTERICIN B
     Dosage: DOSE UNKOWN, 86 TO 208 POD
  10. FLUCONAZOLE. [Suspect]
     Active Substance: FLUCONAZOLE
     Indication: ANTIFUNGAL PROPHYLAXIS
     Dosage: 200 MG, QD, 1 TO 17 POD
     Route: 048
  11. POSACONAZOLE [Suspect]
     Active Substance: POSACONAZOLE
     Indication: ANTIFUNGAL TREATMENT
     Dosage: 300 MG, BID, LOADING DOSE
     Route: 048
  12. POSACONAZOLE [Suspect]
     Active Substance: POSACONAZOLE
     Dosage: 300 MG, QD, 31 POD
     Route: 048

REACTIONS (3)
  - Cytomegalovirus infection [Fatal]
  - Scedosporium infection [Fatal]
  - Atrial fibrillation [Unknown]
